FAERS Safety Report 4553135-7 (Version None)
Quarter: 2005Q1

REPORT INFORMATION
  Report Type: 
  Country: None (occurrence: None)
  Receive Date: 20050113
  Receipt Date: 20050103
  Transmission Date: 20050727
  Serious: No
  Sender: FDA-Public Use
  Company Number: 2005AC00020

PATIENT
  Age: 54 Year
  Sex: Female
  Weight: 55.5 kg

DRUGS (6)
  1. CRESTOR [Suspect]
     Indication: HYPERLIPIDAEMIA
     Dosage: 10 MG DAILY PO
     Route: 048
     Dates: start: 20041126, end: 20041201
  2. EZETIMIBE [Concomitant]
  3. LISINOPRIL DIHYDRATED [Concomitant]
  4. SIMVASTATIN [Concomitant]
  5. OMEPRAZOLE [Concomitant]
  6. RANITIDINE HYDROCHLORIDE [Concomitant]

REACTIONS (3)
  - HYPOKINESIA [None]
  - MOBILITY DECREASED [None]
  - MYALGIA [None]
